FAERS Safety Report 12113964 (Version 1)
Quarter: 2016Q1

REPORT INFORMATION
  Report Type: Spontaneous
  Country: US (occurrence: US)
  Receive Date: 20160225
  Receipt Date: 20160225
  Transmission Date: 20160526
  Serious: No
  Sender: FDA-Public Use
  Company Number: US-PFIZER INC-2016081031

PATIENT
  Age: 64 Year
  Sex: Male
  Weight: 111 kg

DRUGS (2)
  1. LYRICA [Suspect]
     Active Substance: PREGABALIN
     Indication: ANKYLOSING SPONDYLITIS
     Dosage: UNK
     Dates: start: 201511
  2. LYRICA [Suspect]
     Active Substance: PREGABALIN
     Indication: EXOSTOSIS

REACTIONS (1)
  - Drug ineffective for unapproved indication [Unknown]
